FAERS Safety Report 7351022-2 (Version None)
Quarter: 2011Q1

REPORT INFORMATION
  Report Type: 
  Country: None (occurrence: None)
  Receive Date: 20110314
  Receipt Date: 20110304
  Transmission Date: 20110831
  Serious: Yes (Hospitalization)
  Sender: FDA-Public Use
  Company Number: US-ASTRAZENECA-2011SE12427

PATIENT
  Age: 674 Month
  Sex: Female
  Weight: 81.6 kg

DRUGS (11)
  1. SEROQUEL [Suspect]
     Indication: SLEEP DISORDER
     Route: 048
  2. SEROQUEL [Suspect]
     Route: 048
  3. SYMBICORT [Suspect]
     Indication: CHRONIC OBSTRUCTIVE PULMONARY DISEASE
     Dosage: DAILY
     Route: 055
  4. SEROQUEL [Suspect]
     Indication: DEPRESSION
     Route: 048
  5. PROZAC [Concomitant]
     Route: 048
  6. FLUOXETINE [Concomitant]
     Route: 048
  7. CLONAZEPAM [Concomitant]
     Route: 048
  8. VICODIN [Concomitant]
     Route: 048
  9. SEROQUEL [Suspect]
     Route: 048
  10. SEROQUEL [Suspect]
     Route: 048
  11. SEROQUEL [Suspect]
     Indication: POST CONCUSSION SYNDROME
     Route: 048

REACTIONS (2)
  - PNEUMONIA [None]
  - WEIGHT INCREASED [None]
